FAERS Safety Report 17801969 (Version 1)
Quarter: 2020Q2

REPORT INFORMATION
  Report Type: Spontaneous
  Country: JP (occurrence: JP)
  Receive Date: 20200519
  Receipt Date: 20200519
  Transmission Date: 20200714
  Serious: Yes (Death)
  Sender: FDA-Public Use
  Company Number: JP-PFIZER INC-2020196528

PATIENT
  Age: 56 Year
  Sex: Female

DRUGS (6)
  1. BROTIZOLAM [Suspect]
     Active Substance: BROTIZOLAM
     Dosage: 0.25 MG
     Route: 048
  2. CLOTIAZEPAM [Suspect]
     Active Substance: CLOTIAZEPAM
     Route: 048
  3. RIZE [Suspect]
     Active Substance: CLOTIAZEPAM
     Dosage: 5 MG
     Route: 048
  4. PAROXETINE HYDROCHLORIDE. [Suspect]
     Active Substance: PAROXETINE HYDROCHLORIDE
     Route: 048
  5. TRIAZOLAM. [Suspect]
     Active Substance: TRIAZOLAM
     Dosage: UNK
     Route: 048
  6. TRIAZOLAM. [Suspect]
     Active Substance: TRIAZOLAM
     Dosage: UNK
     Route: 048

REACTIONS (1)
  - Completed suicide [Fatal]
